FAERS Safety Report 8190005-X (Version None)
Quarter: 2012Q1

REPORT INFORMATION
  Report Type: 
  Country: None (occurrence: None)
  Receive Date: 20120307
  Receipt Date: 20120301
  Transmission Date: 20120608
  Serious: Yes (Hospitalization, Other)
  Sender: FDA-Public Use
  Company Number: NO-JNJFOC-20120213991

PATIENT

DRUGS (10)
  1. DOXORUBICIN HCL [Suspect]
     Indication: SARCOMA
     Route: 042
  2. MESNA [Suspect]
     Route: 042
  3. IFOSFAMIDE [Suspect]
     Indication: SARCOMA
     Route: 042
  4. IFOSFAMIDE [Suspect]
     Route: 042
  5. MESNA [Suspect]
     Indication: SARCOMA
     Route: 042
  6. DOXORUBICIN HCL [Suspect]
     Route: 042
  7. IFOSFAMIDE [Suspect]
     Route: 042
  8. RADIATION THERAPY NOS [Suspect]
     Indication: SARCOMA
     Route: 065
  9. DOXORUBICIN HCL [Suspect]
     Route: 042
  10. MESNA [Suspect]
     Route: 042

REACTIONS (10)
  - PYREXIA [None]
  - PLATELET DISORDER [None]
  - HAEMATURIA [None]
  - TRANSAMINASES ABNORMAL [None]
  - BLOOD CREATININE ABNORMAL [None]
  - HOSPITALISATION [None]
  - WHITE BLOOD CELL COUNT ABNORMAL [None]
  - HAEMOGLOBIN ABNORMAL [None]
  - OFF LABEL USE [None]
  - STOMATITIS [None]
